FAERS Safety Report 9805786 (Version 1)
Quarter: 2014Q1

REPORT INFORMATION
  Report Type: Spontaneous
  Country: US (occurrence: US)
  Receive Date: 20140109
  Receipt Date: 20140109
  Transmission Date: 20141002
  Serious: No
  Sender: FDA-Public Use
  Company Number: US-TEVA-454807USA

PATIENT
  Age: 24 Year
  Sex: Female
  Weight: 108.05 kg

DRUGS (2)
  1. PARAGARD 380A [Suspect]
     Indication: CONTRACEPTION
     Route: 015
     Dates: start: 20121130, end: 20130916
  2. IUD NOS [Concomitant]
     Indication: CONTRACEPTION
     Route: 015
     Dates: start: 20131226

REACTIONS (2)
  - Menorrhagia [Unknown]
  - Device expulsion [Recovered/Resolved]
